FAERS Safety Report 10622213 (Version 1)
Quarter: 2014Q4

REPORT INFORMATION
  Report Type: Spontaneous
  Country: US (occurrence: None)
  Receive Date: 20141201
  Receipt Date: 20141201
  Transmission Date: 20150529
  Serious: Yes (Hospitalization)
  Sender: FDA-Public Use
  Company Number: None

PATIENT
  Age: 60 Year
  Sex: Female
  Weight: 70 kg

DRUGS (2)
  1. TAXOL [Suspect]
     Active Substance: PACLITAXEL
  2. CARBOPLATIN. [Suspect]
     Active Substance: CARBOPLATIN

REACTIONS (7)
  - Pleural effusion [None]
  - Purulent discharge [None]
  - Respiratory failure [None]
  - Sepsis [None]
  - Gastrointestinal anastomotic leak [None]
  - Pneumonia [None]
  - Atelectasis [None]

NARRATIVE: CASE EVENT DATE: 20141123
